FAERS Safety Report 7691956-2 (Version None)
Quarter: 2011Q3

REPORT INFORMATION
  Report Type: 
  Country: None (occurrence: None)
  Receive Date: 20110818
  Receipt Date: 20110804
  Transmission Date: 20111222
  Serious: Yes (Hospitalization, Other)
  Sender: FDA-Public Use
  Company Number: US-BAYER-2011-001028

PATIENT
  Age: 30 Year
  Sex: Female
  Weight: 90.703 kg

DRUGS (7)
  1. PREDNISONE [Concomitant]
  2. IBUPROFEN [Concomitant]
     Dosage: 400 MG, UNK
     Route: 048
  3. BACTRIM DS [Concomitant]
     Route: 048
  4. DARVOCET [Concomitant]
     Route: 048
  5. YASMIN [Suspect]
     Indication: ACNE
     Dosage: UNK
     Dates: start: 20060920, end: 20061214
  6. ZITHROMAX [Concomitant]
     Dosage: 250 MG, UNK
     Route: 048
  7. ALBUTEROL SULFATE AUTOHALER [Concomitant]
     Dosage: UNK
     Dates: start: 20061105

REACTIONS (9)
  - EAR PAIN [None]
  - DIZZINESS [None]
  - CEREBROVASCULAR ACCIDENT [None]
  - TOOTHACHE [None]
  - SINUSITIS [None]
  - VIITH NERVE PARALYSIS [None]
  - DYSARTHRIA [None]
  - FATIGUE [None]
  - DISORIENTATION [None]
